FAERS Safety Report 4496888-9 (Version None)
Quarter: 2004Q3

REPORT INFORMATION
  Report Type: 
  Country: None (occurrence: None)
  Receive Date: 20040928
  Receipt Date: 20040809
  Transmission Date: 20050211
  Serious: No
  Sender: FDA-Public Use
  Company Number: 04P-163-0258343-00

PATIENT
  Age: 67 Year
  Sex: Female

DRUGS (8)
  1. HUMIRA [Suspect]
     Indication: RHEUMATOID ARTHRITIS
     Dosage: 40 MG 1 IN 2 WK SUBCUTANEOUS
     Route: 058
     Dates: start: 20030717, end: 20031218
  2. LEFLUNOMIDE [Concomitant]
  3. IRON [Concomitant]
  4. CLONADINE [Concomitant]
  5. INSULIN [Concomitant]
  6. LEVOTHYROXINE SODIUM [Concomitant]
  7. ACETYLSALICYLIC ACID [Concomitant]
  8. ESTROGENS CONJUGATED [Concomitant]

REACTIONS (1)
  - SUBCORNEAL PUSTULAR DERMATOSIS [None]
